FAERS Safety Report 4710556-7 (Version None)
Quarter: 2005Q3

REPORT INFORMATION
  Report Type: 
  Country: None (occurrence: None)
  Receive Date: 20050711
  Receipt Date: 20050614
  Transmission Date: 20060218
  Serious: Yes (Life-Threatening, Hospitalization, Other)
  Sender: FDA-Public Use
  Company Number: 2005PK01055

PATIENT
  Age: 30785 Day
  Sex: Female
  Weight: 60 kg

DRUGS (4)
  1. FASLODEX [Suspect]
     Indication: BREAST CANCER FEMALE
     Route: 030
     Dates: start: 20050301
  2. ASS 100 [Concomitant]
     Indication: CORONARY ARTERY DISEASE
  3. BISOPROLOL COMP [Concomitant]
     Indication: HYPERTENSION
  4. TORSEMIDE [Concomitant]
     Indication: HYPERTENSION

REACTIONS (2)
  - ANAPHYLACTIC REACTION [None]
  - ASTHMA [None]
